FAERS Safety Report 25983163 (Version 1)
Quarter: 2025Q4

REPORT INFORMATION
  Report Type: Spontaneous
  Country: GB (occurrence: GB)
  Receive Date: 20251031
  Receipt Date: 20251031
  Transmission Date: 20260117
  Serious: Yes (Other)
  Sender: DR REDDYS
  Company Number: None

PATIENT
  Age: 25 Year
  Sex: Female

DRUGS (1)
  1. SUMATRIPTAN [Suspect]
     Active Substance: SUMATRIPTAN
     Indication: Migraine with aura
     Dates: end: 20191217

REACTIONS (5)
  - Dysphagia [Recovered/Resolved]
  - Odynophagia [Recovered/Resolved]
  - Paraesthesia [Recovered/Resolved]
  - Glossodynia [Recovered/Resolved]
  - Dyspnoea [Recovered/Resolved]
